FAERS Safety Report 7085144-0 (Version None)
Quarter: 2010Q4

REPORT INFORMATION
  Report Type: 
  Country: None (occurrence: None)
  Receive Date: 20101105
  Receipt Date: 20101025
  Transmission Date: 20110411
  Serious: Yes (Hospitalization)
  Sender: FDA-Public Use
  Company Number: NL-JNJFOC-20100607101

PATIENT
  Sex: Female
  Weight: 103 kg

DRUGS (12)
  1. REMICADE [Suspect]
     Indication: ANKYLOSING SPONDYLITIS
     Route: 042
  2. REMICADE [Suspect]
     Route: 042
  3. REMICADE [Suspect]
     Route: 042
  4. REMICADE [Suspect]
     Route: 042
  5. REMICADE [Suspect]
     Route: 042
  6. REMICADE [Suspect]
     Route: 042
  7. REMICADE [Suspect]
     Route: 042
  8. UNSPECIFIED ANTIDEPRESSANTS [Suspect]
     Indication: ILL-DEFINED DISORDER
  9. NAPROXEN [Suspect]
     Indication: ILL-DEFINED DISORDER
     Dosage: AS NEEDED
  10. EFFEXOR [Suspect]
     Indication: ILL-DEFINED DISORDER
  11. METOPROLOL [Concomitant]
  12. FLUVOXAMINE [Concomitant]

REACTIONS (11)
  - ASTHENIA [None]
  - BLOOD GLUCOSE DECREASED [None]
  - CYTOMEGALOVIRUS INFECTION [None]
  - DIZZINESS [None]
  - FALL [None]
  - HEPATIC CIRRHOSIS [None]
  - HEPATIC FAILURE [None]
  - HEPATITIS [None]
  - HEPATITIS ACUTE [None]
  - SOMNOLENCE [None]
  - THROMBOCYTOPENIA [None]
